FAERS Safety Report 12936584 (Version 2)
Quarter: 2016Q4

REPORT INFORMATION
  Report Type: Spontaneous
  Country: JP (occurrence: JP)
  Receive Date: 20161114
  Receipt Date: 20161229
  Transmission Date: 20170207
  Serious: Yes (Other)
  Sender: FDA-Public Use
  Company Number: JP-PFIZER INC-2016387096

PATIENT
  Age: 70 Year
  Sex: Male

DRUGS (4)
  1. SELARA 25MG [Suspect]
     Active Substance: EPLERENONE
     Dosage: 25 MG, DAILY
     Route: 048
  2. BAYASPIRIN [Concomitant]
     Active Substance: ASPIRIN
     Dosage: UNK
  3. NEXIUM [Concomitant]
     Active Substance: ESOMEPRAZOLE MAGNESIUM
     Dosage: UNK
  4. BISOPROLOL FUMARATE. [Concomitant]
     Active Substance: BISOPROLOL FUMARATE
     Dosage: UNK

REACTIONS (4)
  - Tachycardia [Unknown]
  - Dizziness [Unknown]
  - Arrhythmia [Unknown]
  - Blood pressure decreased [Unknown]
